FAERS Safety Report 9432778 (Version 1)
Quarter: 2013Q3

REPORT INFORMATION
  Report Type: Spontaneous
  Country: US (occurrence: US)
  Receive Date: 20130731
  Receipt Date: 20130731
  Transmission Date: 20140515
  Serious: Yes (Hospitalization)
  Sender: FDA-Public Use
  Company Number: US-B.I. PHARMACEUTICALS,INC./RIDGEFIELD-2013-BI-22329BP

PATIENT
  Age: 69 Year
  Sex: Female

DRUGS (8)
  1. COMBIVENT [Suspect]
     Indication: BRONCHITIS CHRONIC
     Dosage: STRENGTH: 18 MCG / 103 MCG; DAILY DOSE: 144 MCG/824 MCG
     Route: 055
     Dates: start: 201202
  2. ISOSORBIDE [Concomitant]
     Indication: CORONARY ARTERY OCCLUSION
     Dosage: 30 MG
     Route: 048
     Dates: start: 2012
  3. ASPIRIN [Concomitant]
     Indication: CORONARY ARTERY OCCLUSION
     Dosage: 81 MG
     Route: 048
     Dates: start: 1999
  4. LISINOPRIL [Concomitant]
     Indication: HYPERTENSION
     Dosage: 20 MG
     Route: 048
     Dates: start: 1999
  5. PLAVIX [Concomitant]
     Indication: CORONARY ARTERY OCCLUSION
     Dosage: 75 MG
     Route: 048
     Dates: start: 1999
  6. COREG [Concomitant]
     Indication: ARRHYTHMIA
     Dosage: 12.5 MG
     Route: 048
     Dates: start: 1999
  7. LASIX [Concomitant]
     Indication: SWELLING
     Route: 048
     Dates: start: 2012
  8. KLOR CON [Concomitant]
     Indication: THERAPEUTIC PROCEDURE
     Dates: start: 2012

REACTIONS (1)
  - Pneumonia viral [Recovered/Resolved]
